FAERS Safety Report 15488643 (Version 1)
Quarter: 2018Q4

REPORT INFORMATION
  Report Type: Spontaneous
  Country: FR (occurrence: FR)
  Receive Date: 20181011
  Receipt Date: 20181011
  Transmission Date: 20190205
  Serious: Yes (Death, Other)
  Sender: FDA-Public Use
  Company Number: FR-PFIZER INC-2018408513

PATIENT
  Age: 30 Year
  Sex: Male

DRUGS (4)
  1. PANTOPRAZOLE [Suspect]
     Active Substance: PANTOPRAZOLE
     Indication: PROPHYLAXIS AGAINST GASTROINTESTINAL ULCER
     Dosage: 20 MG, DAILY
     Route: 048
     Dates: start: 20180602, end: 20180722
  2. PREDNISONE. [Suspect]
     Active Substance: PREDNISONE
     Indication: POLYARTERITIS NODOSA
     Dosage: 30 MG, DAILY
     Route: 048
     Dates: start: 20180602, end: 20180723
  3. CANDESARTAN CILEXETIL. [Suspect]
     Active Substance: CANDESARTAN CILEXETIL
     Indication: MALIGNANT HYPERTENSION
     Dosage: 2 DF, DAILY
     Route: 048
     Dates: start: 20180602, end: 20180717
  4. COUMADINE [Suspect]
     Active Substance: WARFARIN SODIUM
     Indication: POLYARTERITIS NODOSA
     Dosage: 4 MG, DAILY
     Route: 048
     Dates: start: 20180602, end: 20180722

REACTIONS (2)
  - Toxic epidermal necrolysis [Fatal]
  - Intestinal perforation [Fatal]

NARRATIVE: CASE EVENT DATE: 20180713
